FAERS Safety Report 13902300 (Version 1)
Quarter: 2017Q3

REPORT INFORMATION
  Report Type: Spontaneous
  Country: US (occurrence: US)
  Receive Date: 20170824
  Receipt Date: 20170824
  Transmission Date: 20171127
  Serious: No
  Sender: FDA-Public Use
  Company Number: US-ROCHE-1105927

PATIENT
  Sex: Male

DRUGS (2)
  1. HERCEPTIN [Suspect]
     Active Substance: TRASTUZUMAB
     Indication: LUNG CANCER METASTATIC
     Route: 065
  2. XELODA [Suspect]
     Active Substance: CAPECITABINE
     Indication: LUNG CANCER METASTATIC
     Route: 065

REACTIONS (6)
  - Treatment failure [Unknown]
  - Epistaxis [Unknown]
  - Ear haemorrhage [Unknown]
  - Dysphonia [Unknown]
  - Pharyngeal haemorrhage [Unknown]
  - Hypersensitivity [Unknown]
